FAERS Safety Report 13087975 (Version 1)
Quarter: 2017Q1

REPORT INFORMATION
  Report Type: Spontaneous
  Country: US (occurrence: US)
  Receive Date: 20170104
  Receipt Date: 20170104
  Transmission Date: 20170428
  Serious: Yes (Hospitalization)
  Sender: FDA-Public Use
  Company Number: None

PATIENT
  Age: 68 Year
  Sex: Male

DRUGS (1)
  1. MULTIHANCE [Suspect]
     Active Substance: GADOBENATE DIMEGLUMINE
     Indication: FACIAL PARALYSIS
     Dosage: ?          OTHER FREQUENCY:ONCE;?INTRAVENOUS (NOT OTHERWISE SPECIFIED)
     Route: 042
     Dates: start: 20161110, end: 20161110

REACTIONS (4)
  - Malaise [None]
  - Contrast media reaction [None]
  - Fall [None]
  - Pruritus [None]

NARRATIVE: CASE EVENT DATE: 20161110
